FAERS Safety Report 17120541 (Version 2)
Quarter: 2021Q4

REPORT INFORMATION
  Report Type: Other
  Country: JP (occurrence: JP)
  Receive Date: 20191206
  Receipt Date: 20211022
  Transmission Date: 20220303
  Serious: Yes (Death, Other)
  Sender: FDA-Public Use
  Company Number: JP-CHUGAI-A2019050561ROCHE

PATIENT
  Age: 67 Year
  Sex: Female
  Weight: 54 kg

DRUGS (5)
  1. BEVACIZUMAB [Suspect]
     Active Substance: BEVACIZUMAB
     Indication: Rectosigmoid cancer
     Dosage: FOR TWICE/ONE WEEK
     Route: 041
     Dates: start: 20160929, end: 20161027
  2. OXALIPLATIN [Suspect]
     Active Substance: OXALIPLATIN
     Indication: Rectosigmoid cancer
     Route: 041
     Dates: start: 20160929
  3. FLUOROURACIL [Concomitant]
     Active Substance: FLUOROURACIL
     Indication: Rectosigmoid cancer
     Dosage: DOSAGE IS UNCERTAIN.
     Route: 040
     Dates: start: 20160929
  4. FLUOROURACIL [Concomitant]
     Active Substance: FLUOROURACIL
     Dosage: DOSAGE IS UNCERTAIN.
     Route: 041
     Dates: start: 20160929, end: 20161027
  5. LEVOLEUCOVORIN CALCIUM [Concomitant]
     Active Substance: LEVOLEUCOVORIN CALCIUM
     Indication: Rectosigmoid cancer
     Dosage: DOSAGE IS UNCERTAIN.
     Route: 041
     Dates: start: 20160929, end: 20161027

REACTIONS (3)
  - Pulmonary embolism [Unknown]
  - Embolism venous [Unknown]
  - Colon cancer [Fatal]

NARRATIVE: CASE EVENT DATE: 20161102
